FAERS Safety Report 24710109 (Version 1)
Quarter: 2024Q4

REPORT INFORMATION
  Report Type: Spontaneous
  Country: GB (occurrence: GB)
  Receive Date: 20241209
  Receipt Date: 20241209
  Transmission Date: 20250114
  Serious: Yes (Other)
  Sender: TEVA
  Company Number: GB-MHRA-TPP43960604C7140535YC1732824151006

PATIENT
  Age: 90 Year
  Sex: Female
  Weight: 71 kg

DRUGS (2)
  1. DOXYCYCLINE [Suspect]
     Active Substance: DOXYCYCLINE
     Indication: Ill-defined disorder
     Route: 065
  2. AMOXICILLIN [Concomitant]
     Active Substance: AMOXICILLIN
     Indication: Ill-defined disorder
     Dosage: TIME INTERVAL: 0.33333333 DAYS: DAILY DOSE: 3 DOSAGE FORM
     Route: 065
     Dates: start: 20241128

REACTIONS (2)
  - Swelling face [Unknown]
  - Malaise [Unknown]
